FAERS Safety Report 8840301 (Version 2)
Quarter: 2012Q4

REPORT INFORMATION
  Report Type: 
  Country: US (occurrence: US)
  Receive Date: 20121015
  Receipt Date: 20121120
  Transmission Date: 20130627
  Serious: Yes (Life-Threatening, Hospitalization, Other)
  Sender: FDA-Public Use
  Company Number: US-ASTRAZENECA-2012SE76883

PATIENT
  Age: 69 Year
  Sex: Female

DRUGS (22)
  1. CRESTOR [Suspect]
     Indication: HYPERCHOLESTEROLAEMIA
     Route: 048
     Dates: end: 20120910
  2. CHOLESTEROL MEDICATION [Concomitant]
  3. CV DISEASE MEDICATION [Concomitant]
  4. BYETTA [Concomitant]
  5. DILTIAZEM [Concomitant]
     Route: 048
  6. ISOSORBIDE [Concomitant]
     Indication: BLOOD PRESSURE ABNORMAL
  7. PLAVIX [Concomitant]
     Route: 048
  8. POTASSIUM [Concomitant]
     Route: 048
  9. POTASSIUM [Concomitant]
     Route: 048
  10. LOSARTAN [Concomitant]
     Route: 048
  11. METFORMIN [Concomitant]
     Dosage: 1000 MG AM
     Route: 048
  12. METFORMIN [Concomitant]
     Dosage: 500 MG PM
     Route: 048
  13. ASACOL EC [Concomitant]
     Indication: GASTRIC DISORDER
  14. ASACOL EC [Concomitant]
     Indication: GASTRIC DISORDER
  15. ASPIRIN [Concomitant]
     Route: 048
  16. ASPIRIN [Concomitant]
     Route: 048
  17. CYANOCOBALAMIN [Concomitant]
     Route: 048
  18. HYDROCHLOROTHIAZIDE [Concomitant]
     Route: 048
  19. LANSOPRAZOLE [Concomitant]
     Route: 048
  20. GLYBURIDE [Concomitant]
     Route: 048
  21. FISH OIL [Concomitant]
     Route: 048
  22. PENTASA [Concomitant]
     Route: 048

REACTIONS (25)
  - Renal failure acute [Unknown]
  - Ventricular extrasystoles [Unknown]
  - Metabolic acidosis [Unknown]
  - Rhabdomyolysis [Recovering/Resolving]
  - Anaemia [Unknown]
  - White blood cell count increased [Unknown]
  - Haemoglobin decreased [Unknown]
  - Haematocrit decreased [Unknown]
  - Diarrhoea [Unknown]
  - Blood calcium decreased [Unknown]
  - Blood glucose decreased [Unknown]
  - Type 2 diabetes mellitus [Unknown]
  - Hypertension [Unknown]
  - Asthma [Unknown]
  - Neuropathy peripheral [Unknown]
  - Diabetic retinopathy [Unknown]
  - Intraocular lens implant [Unknown]
  - Blood glucose increased [Unknown]
  - Dyspnoea [Unknown]
  - Malaise [Unknown]
  - Decreased appetite [Unknown]
  - Palpitations [Unknown]
  - Irritable bowel syndrome [Unknown]
  - Chest discomfort [Unknown]
  - Fatigue [Recovering/Resolving]
